FAERS Safety Report 9011391 (Version 3)
Quarter: 2013Q3

REPORT INFORMATION
  Report Type: Spontaneous
  Country: US (occurrence: US)
  Receive Date: 20130108
  Receipt Date: 20130731
  Transmission Date: 20140515
  Serious: No
  Sender: FDA-Public Use
  Company Number: US-PFIZER INC-2013007050

PATIENT
  Age: 46 Year
  Sex: Female
  Weight: 63.49 kg

DRUGS (18)
  1. NEURONTIN [Suspect]
     Dosage: UNK
  2. LYRICA [Suspect]
     Indication: MUSCULOSKELETAL PAIN
     Dosage: 100 MG, 3X/DAY
     Dates: start: 2007
  3. LYRICA [Suspect]
     Indication: NEURALGIA
  4. LYRICA [Suspect]
     Indication: NEUROPATHY PERIPHERAL
  5. LYRICA [Suspect]
     Indication: MYALGIA
  6. LYRICA [Suspect]
     Indication: MYOSITIS
  7. LYRICA [Suspect]
     Indication: INTERVERTEBRAL DISC PROTRUSION
  8. LYRICA [Suspect]
     Indication: PAIN
  9. ZOLPIDEM [Concomitant]
     Indication: SLEEP DISORDER
     Dosage: 10 MG DAILY
  10. SYNTHROID [Concomitant]
     Indication: THYROID DISORDER
     Dosage: 150 MCG DAILY
  11. XANAX [Concomitant]
     Indication: ANXIETY DISORDER
     Dosage: 2 MG, 4X/DAY
  12. CYCLOBENZAPRINE [Concomitant]
     Indication: MUSCLE SPASMS
     Dosage: 10 MG, 3X/DAY
  13. SIMVASTATIN [Concomitant]
     Indication: BLOOD CHOLESTEROL INCREASED
     Dosage: 40 MG DAILY
  14. ADVAIR DISKUS [Concomitant]
     Indication: ASTHMA
     Dosage: 100 UG, 2X/DAY
  15. ACETAMINOPHEN W/OXYCODONE [Concomitant]
     Dosage: 10/325 MG, 4X/DAY
  16. VENTOLIN HFA [Concomitant]
     Dosage: 90 UG, AS NEEDED
  17. PROTONIX [Concomitant]
     Indication: ULCER HAEMORRHAGE
     Dosage: 40 MG, 2X/DAY
  18. PROTONIX [Concomitant]
     Indication: GASTROOESOPHAGEAL REFLUX DISEASE

REACTIONS (8)
  - Fall [Unknown]
  - Back injury [Unknown]
  - Feeling abnormal [Unknown]
  - Dizziness [Unknown]
  - Dry mouth [Unknown]
  - Pain [Unknown]
  - Oral disorder [Unknown]
  - Agitation [Unknown]
